FAERS Safety Report 9018532 (Version 1)
Quarter: 2013Q1

REPORT INFORMATION
  Report Type: Spontaneous
  Country: US (occurrence: US)
  Receive Date: 20130118
  Receipt Date: 20130118
  Transmission Date: 20140127
  Serious: No
  Sender: FDA-Public Use
  Company Number: US-PFIZER INC-2013018874

PATIENT
  Age: 40 Year
  Sex: Female

DRUGS (2)
  1. MORPHINE [Suspect]
     Dosage: UNK
  2. AMITRIPTYLINE [Suspect]
     Dosage: UNK

REACTIONS (1)
  - Drug hypersensitivity [Unknown]
